FAERS Safety Report 13944931 (Version 1)
Quarter: 2017Q3

REPORT INFORMATION
  Report Type: Spontaneous
  Country: US (occurrence: US)
  Receive Date: 20170907
  Receipt Date: 20170907
  Transmission Date: 20171128
  Serious: No
  Sender: FDA-Public Use
  Company Number: US-009507513-1709USA000202

PATIENT
  Sex: Male

DRUGS (4)
  1. TEMODAR [Suspect]
     Active Substance: TEMOZOLOMIDE
     Indication: ASTROCYTOMA
     Dosage: ONE 140 MG TABLET AND ONE 20 MG TABLET A DAY
     Route: 048
     Dates: start: 20170622, end: 20170803
  2. LEVETIRACETAM. [Concomitant]
     Active Substance: LEVETIRACETAM
     Dosage: UNK
  3. CRESTOR [Concomitant]
     Active Substance: ROSUVASTATIN CALCIUM
     Dosage: UNK
  4. TEMODAR [Suspect]
     Active Substance: TEMOZOLOMIDE
     Dosage: ONE 140 MG TABLET AND ONE 20 MG TABLET A DAY
     Route: 048
     Dates: start: 20170622, end: 20170803

REACTIONS (1)
  - Platelet count decreased [Unknown]

NARRATIVE: CASE EVENT DATE: 2017
